FAERS Safety Report 9842384 (Version 4)
Quarter: 2014Q1

REPORT INFORMATION
  Report Type: Spontaneous
  Country: JP (occurrence: JP)
  Receive Date: 20140124
  Receipt Date: 20140309
  Transmission Date: 20141002
  Serious: Yes (Death)
  Sender: FDA-Public Use
  Company Number: JP-BRISTOL-MYERS SQUIBB COMPANY-19923374

PATIENT
  Age: 60 Year
  Sex: Male
  Weight: 50 kg

DRUGS (8)
  1. ERBITUX SOLN FOR INF 5MG/ML [Suspect]
     Indication: TONGUE NEOPLASM MALIGNANT STAGE UNSPECIFIED
     Dosage: LOADING DOSE 400MG/M2,1 IN 1 WK:19SEP13?250MG/M2:26SEP-24OCT13:28DYS,19NOV13-26NOV13:7DYS?COURSE-8
     Route: 041
     Dates: start: 20130919, end: 20131126
  2. DEXART [Concomitant]
     Indication: PROPHYLAXIS
     Dosage: 6.6MG?19SEP13-19SEP13?26SEP13-26NOV13
     Route: 041
     Dates: start: 20130919, end: 20131126
  3. POLARAMINE [Concomitant]
     Indication: PROPHYLAXIS
     Route: 041
     Dates: start: 20130919, end: 20131126
  4. SALAGEN [Concomitant]
     Indication: DRY MOUTH
     Dosage: 2.5 MG?TABS
     Route: 048
     Dates: start: 20130919, end: 20131201
  5. CONSTAN [Concomitant]
     Indication: PSYCHOSOMATIC DISEASE
     Dosage: TABS
     Route: 048
     Dates: start: 20130822, end: 20131201
  6. OXYCONTIN [Concomitant]
     Indication: CANCER PAIN
     Dosage: TABS
     Route: 048
     Dates: start: 20130813, end: 20131202
  7. MINOPEN [Concomitant]
     Indication: PROPHYLAXIS
     Dosage: TABS
     Route: 048
     Dates: start: 20130919, end: 20131201
  8. LYRICA [Concomitant]
     Indication: PAIN
     Dosage: CAPS
     Route: 048
     Dates: start: 20130919, end: 20131201

REACTIONS (3)
  - Acute respiratory distress syndrome [Fatal]
  - Pneumonia [Fatal]
  - Skin reaction [Not Recovered/Not Resolved]
